FAERS Safety Report 8390494-1 (Version None)
Quarter: 2012Q2

REPORT INFORMATION
  Report Type: 
  Country: None (occurrence: None)
  Receive Date: 20120529
  Receipt Date: 20120523
  Transmission Date: 20120825
  Serious: Yes (Hospitalization, Other)
  Sender: FDA-Public Use
  Company Number: US-JNJFOC-20120515623

PATIENT
  Age: 54 Year
  Sex: Female
  Weight: 107.5 kg

DRUGS (2)
  1. BENADRYL [Suspect]
     Indication: PRURITUS
     Route: 048
     Dates: end: 20120325
  2. CLONIDINE HYDROCHLORIDE [Concomitant]
     Indication: HYPERTENSION
     Route: 065

REACTIONS (5)
  - WEIGHT DECREASED [None]
  - DRUG HYPERSENSITIVITY [None]
  - DECREASED APPETITE [None]
  - CELLULITIS [None]
  - OFF LABEL USE [None]
